FAERS Safety Report 18243505 (Version 4)
Quarter: 2021Q3

REPORT INFORMATION
  Report Type: Spontaneous
  Country: US (occurrence: US)
  Receive Date: 20200908
  Receipt Date: 20210708
  Transmission Date: 20211014
  Serious: No
  Sender: FDA-Public Use
  Company Number: US-PFIZER INC-2020346388

PATIENT
  Age: 68 Year

DRUGS (2)
  1. CAVERJECT [Suspect]
     Active Substance: ALPROSTADIL
     Dosage: 20 UG (STRENGTH: 0.5?1.0ML, # 6 SYRINGES)
  2. CAVERJECT [Suspect]
     Active Substance: ALPROSTADIL
     Dosage: 2.5 UG

REACTIONS (2)
  - Product prescribing error [Unknown]
  - Memory impairment [Unknown]
